FAERS Safety Report 4691972-9 (Version None)
Quarter: 2005Q2

REPORT INFORMATION
  Report Type: 
  Country: None (occurrence: None)
  Receive Date: 20050614
  Receipt Date: 20030818
  Transmission Date: 20051028
  Serious: Yes (Other)
  Sender: FDA-Public Use
  Company Number: 05-000408

PATIENT
  Sex: Female

DRUGS (1)
  1. FEMHRT [Suspect]
     Dosage: ORAL
     Route: 048

REACTIONS (1)
  - MALIGNANT MELANOMA [None]
